FAERS Safety Report 8115395-5 (Version None)
Quarter: 2012Q1

REPORT INFORMATION
  Report Type: 
  Country: None (occurrence: None)
  Receive Date: 20120206
  Receipt Date: 20120206
  Transmission Date: 20120608
  Serious: Yes (Other)
  Sender: FDA-Public Use
  Company Number: None

PATIENT
  Age: 74 Year
  Sex: Female

DRUGS (1)
  1. VERAPAMIL [Suspect]
     Indication: MIGRAINE
     Dosage: 1 TABLET
     Route: 048
     Dates: start: 20090317, end: 20120205

REACTIONS (1)
  - CONSTIPATION [None]
